FAERS Safety Report 9940645 (Version 1)
Quarter: 2014Q1

REPORT INFORMATION
  Report Type: Spontaneous
  Country: GB (occurrence: GB)
  Receive Date: 20140303
  Receipt Date: 20140303
  Transmission Date: 20141002
  Serious: Yes (Other)
  Sender: FDA-Public Use
  Company Number: GB-PFIZER INC-2014056800

PATIENT
  Age: 33 Year
  Sex: 0
  Weight: 63 kg

DRUGS (3)
  1. DEPO-PROVERA [Suspect]
     Indication: CONTRACEPTION
     Dosage: 150MG/1ML, UNK
     Route: 058
     Dates: start: 201401, end: 201401
  2. MEBEVERINE [Concomitant]
  3. NAPROXEN [Concomitant]

REACTIONS (5)
  - Incorrect route of drug administration [Unknown]
  - Injection site abscess [Unknown]
  - Localised infection [Not Recovered/Not Resolved]
  - Injection site pain [Not Recovered/Not Resolved]
  - Injection site swelling [Not Recovered/Not Resolved]
